FAERS Safety Report 10170322 (Version 1)
Quarter: 2014Q2

REPORT INFORMATION
  Report Type: Spontaneous
  Country: CH (occurrence: CH)
  Receive Date: 20140513
  Receipt Date: 20140513
  Transmission Date: 20141212
  Serious: Yes (Hospitalization, Other)
  Sender: FDA-Public Use
  Company Number: CH-PFIZER INC-2014125974

PATIENT
  Age: 74 Year
  Sex: Female

DRUGS (6)
  1. ZOLOFT [Suspect]
     Dosage: 25 MG, 1X/DAY
     Route: 048
  2. METO ZEROK [Interacting]
     Dosage: 200 MG, 1X/DAY
     Route: 048
     Dates: end: 20140312
  3. COVERSUM [Concomitant]
     Dosage: UNK
  4. JANUVIA [Concomitant]
     Dosage: UNK
  5. LESCOL [Concomitant]
     Dosage: UNK
  6. TRANXILIUM [Concomitant]
     Dosage: UNK

REACTIONS (6)
  - Drug interaction [Recovered/Resolved]
  - Syncope [Recovered/Resolved]
  - Bradycardia [Recovered/Resolved]
  - Abdominal pain upper [Recovered/Resolved]
  - Pain in extremity [Recovered/Resolved]
  - Dizziness [Recovered/Resolved]
